FAERS Safety Report 23559244 (Version 2)
Quarter: 2024Q1

REPORT INFORMATION
  Report Type: Report from Study
  Country: SK (occurrence: SK)
  Receive Date: 20240223
  Receipt Date: 20240229
  Transmission Date: 20240410
  Serious: Yes (Life-Threatening)
  Sender: FDA-Public Use
  Company Number: SK-BoehringerIngelheim-2024-BI-010130

PATIENT
  Age: 52 Year
  Sex: Male

DRUGS (1)
  1. JARDIANCE [Suspect]
     Active Substance: EMPAGLIFLOZIN
     Indication: Type 2 diabetes mellitus
     Route: 048
     Dates: end: 2023

REACTIONS (1)
  - Genitourinary tract infection [Recovered/Resolved]

NARRATIVE: CASE EVENT DATE: 20230101
